FAERS Safety Report 8091598-3 (Version None)
Quarter: 2012Q1

REPORT INFORMATION
  Report Type: 
  Country: None (occurrence: None)
  Receive Date: 20120131
  Receipt Date: 20120125
  Transmission Date: 20120608
  Serious: No
  Sender: FDA-Public Use
  Company Number: US-PFIZER INC-2011188879

PATIENT
  Sex: Female
  Weight: 77.098 kg

DRUGS (6)
  1. CLINDAMYCIN [Concomitant]
     Dosage: UNK
  2. LYRICA [Suspect]
     Indication: NEURALGIA
     Dosage: 100 MG, 3X/DAY
     Route: 048
  3. SULFAMETHOXAZOLE AND TRIMETHOPRIM [Concomitant]
     Dosage: 800 MG
  4. CO-Q-10 [Concomitant]
     Dosage: UNK
  5. HYOSCYAMINE [Concomitant]
     Indication: GASTROINTESTINAL DISORDER
     Dosage: 0.125 MG
  6. MULTI-VITAMINS [Concomitant]
     Dosage: UNK

REACTIONS (1)
  - DRUG INEFFECTIVE [None]
